FAERS Safety Report 24326490 (Version 2)
Quarter: 2024Q4

REPORT INFORMATION
  Report Type: Spontaneous
  Country: NL (occurrence: NL)
  Receive Date: 20240917
  Receipt Date: 20241015
  Transmission Date: 20250115
  Serious: Yes (Other)
  Sender: BRISTOL-MYERS SQUIBB COMPANY
  Company Number: NL-BRISTOL-MYERS SQUIBB COMPANY-2024-144953

PATIENT
  Sex: Female

DRUGS (1)
  1. ORENCIA [Suspect]
     Active Substance: ABATACEPT
     Indication: Product used for unknown indication

REACTIONS (5)
  - Device occlusion [Unknown]
  - Incorrect dose administered [Unknown]
  - Device leakage [Unknown]
  - Device safety feature issue [Unknown]
  - Device failure [Unknown]

NARRATIVE: CASE EVENT DATE: 20240904
